FAERS Safety Report 9338760 (Version 1)
Quarter: 2013Q2

REPORT INFORMATION
  Report Type: Spontaneous
  Country: US (occurrence: US)
  Receive Date: 20130610
  Receipt Date: 20130610
  Transmission Date: 20140414
  Serious: No
  Sender: FDA-Public Use
  Company Number: US-ROXANE LABORATORIES, INC.-2013-RO-00932RO

PATIENT
  Age: 44 Year
  Sex: Male
  Weight: 84 kg

DRUGS (1)
  1. PREDNISONE [Suspect]
     Indication: ACUTE INTERSTITIAL PNEUMONITIS
     Dosage: 20 MG
     Route: 048
     Dates: start: 20130408

REACTIONS (1)
  - Insomnia [Unknown]
